FAERS Safety Report 22150325 (Version 1)
Quarter: 2023Q1

REPORT INFORMATION
  Report Type: Spontaneous
  Country: DE (occurrence: DE)
  Receive Date: 20230329
  Receipt Date: 20230329
  Transmission Date: 20230417
  Serious: Yes (Other)
  Sender: FDA-Public Use
  Company Number: DE-002147023-NVSC2023DE069433

PATIENT
  Sex: Female

DRUGS (3)
  1. MEKINIST [Suspect]
     Active Substance: TRAMETINIB DIMETHYL SULFOXIDE
     Indication: Malignant melanoma
     Dosage: 2 MG, QD
     Route: 065
     Dates: start: 201907
  2. TAFINLAR [Suspect]
     Active Substance: DABRAFENIB MESYLATE
     Indication: Malignant melanoma
     Dosage: 150 MG, BID
     Route: 065
     Dates: start: 201907
  3. XGEVA [Concomitant]
     Active Substance: DENOSUMAB
     Indication: Metastases to bone
     Dosage: 120 MG, Q4W
     Route: 058

REACTIONS (7)
  - Metastases to central nervous system [Unknown]
  - Central nervous system haemorrhage [Unknown]
  - Metastases to lung [Unknown]
  - Castleman^s disease [Unknown]
  - Metastases to soft tissue [Unknown]
  - Metastases to lymph nodes [Unknown]
  - Blood lactate dehydrogenase increased [Unknown]

NARRATIVE: CASE EVENT DATE: 20190801
